FAERS Safety Report 16038029 (Version 3)
Quarter: 2019Q3

REPORT INFORMATION
  Report Type: Report from Study
  Country: US (occurrence: US)
  Receive Date: 20190305
  Receipt Date: 20190709
  Transmission Date: 20191004
  Serious: Yes (Death, Hospitalization)
  Sender: FDA-Public Use
  Company Number: US-ACTELION-A-NJ2019-187096

PATIENT
  Age: 51 Year
  Sex: Female
  Weight: 61.22 kg

DRUGS (18)
  1. ALBUTEROL SULFATE. [Concomitant]
     Active Substance: ALBUTEROL SULFATE
     Dosage: 1 PUFF, QD
     Dates: start: 20190301
  2. GABAPENTIN. [Concomitant]
     Active Substance: GABAPENTIN
     Dosage: 100 MG, QD, TID, PRN
     Dates: start: 20180801
  3. OXYGEN. [Concomitant]
     Active Substance: OXYGEN
  4. FERROUS SULFATE. [Concomitant]
     Active Substance: FERROUS SULFATE
     Dosage: 325 MG
     Route: 048
  5. SODIUM BICARBONATE. [Concomitant]
     Active Substance: SODIUM BICARBONATE
     Dosage: 650 MG, BID
     Route: 048
  6. ZOFRAN [Concomitant]
     Active Substance: ONDANSETRON HYDROCHLORIDE
     Dosage: 8 MG
     Route: 048
     Dates: start: 20180801
  7. VITAMIN D [Concomitant]
     Active Substance: VITAMIN D NOS
     Dosage: 5000 UNK
     Route: 048
  8. OXYCODONE HYDROCHLORIDE. [Concomitant]
     Active Substance: OXYCODONE HYDROCHLORIDE
     Dosage: 15 MG, 4-6 HRS PRN
     Route: 048
     Dates: start: 20180801
  9. SPIRIVA [Concomitant]
     Active Substance: TIOTROPIUM BROMIDE MONOHYDRATE
     Dosage: 18 MCG, QD, 1 PUFF
     Dates: start: 20180801
  10. ASPIRIN. [Concomitant]
     Active Substance: ASPIRIN
     Dosage: 81 MG
     Route: 048
     Dates: start: 20181116
  11. CITALOPRAM HYDROBROMIDE. [Concomitant]
     Active Substance: CITALOPRAM HYDROBROMIDE
     Dosage: 40 MG, QD
     Route: 048
     Dates: start: 20180801
  12. POTASSIUM CHLORIDE. [Concomitant]
     Active Substance: POTASSIUM CHLORIDE
     Dosage: 20 MEQ
     Route: 048
     Dates: start: 20190301
  13. OPSUMIT [Suspect]
     Active Substance: MACITENTAN
     Indication: PULMONARY HYPERTENSION
     Dosage: 10 MG, QD
     Route: 048
     Dates: start: 20181108
  14. SILDENAFIL CITRATE. [Concomitant]
     Active Substance: SILDENAFIL CITRATE
     Dosage: 20 MG, TID
     Dates: start: 20181022
  15. FUROSEMIDE. [Concomitant]
     Active Substance: FUROSEMIDE
     Dosage: 40 MG, QD
     Route: 048
     Dates: start: 20180801
  16. FOLIC ACID. [Concomitant]
     Active Substance: FOLIC ACID
     Dosage: 1 MG, QD
     Route: 048
     Dates: start: 20180801
  17. TIZANIDINE HCL [Concomitant]
     Active Substance: TIZANIDINE HYDROCHLORIDE
     Dosage: 2 MG, 8-12 HOURS
     Dates: start: 20190301
  18. SYMBICORT [Concomitant]
     Active Substance: BUDESONIDE\FORMOTEROL FUMARATE DIHYDRATE
     Dosage: 2 PUFFS, BID
     Dates: start: 20180801

REACTIONS (33)
  - Cardiac arrest [Fatal]
  - Bronchitis [Unknown]
  - Weight increased [Unknown]
  - Syncope [Unknown]
  - Back pain [Unknown]
  - Muscular weakness [Unknown]
  - Temperature intolerance [Unknown]
  - Vision blurred [Unknown]
  - Asthenia [Unknown]
  - Arthralgia [Unknown]
  - Hypoxia [Recovering/Resolving]
  - Venous hypertension [Unknown]
  - Inflammation [Unknown]
  - Chest pain [Unknown]
  - Skin lesion [Unknown]
  - Chronic kidney disease [Unknown]
  - Dyspnoea [Unknown]
  - Fatigue [Unknown]
  - Joint swelling [Unknown]
  - Diarrhoea [Unknown]
  - Dysuria [Unknown]
  - Abdominal pain [Unknown]
  - Carotid artery occlusion [Unknown]
  - Weight decreased [Unknown]
  - Constipation [Unknown]
  - Muscle spasms [Unknown]
  - Arthritis [Unknown]
  - Anxiety [Unknown]
  - Oedema peripheral [Unknown]
  - Haematuria [Unknown]
  - Pneumonia [Unknown]
  - Anaemia [Unknown]
  - Carotid artery stenosis [Unknown]

NARRATIVE: CASE EVENT DATE: 20190511
